FAERS Safety Report 5447761-0 (Version None)
Quarter: 2007Q3

REPORT INFORMATION
  Report Type: 
  Country: None (occurrence: None)
  Receive Date: 20070910
  Receipt Date: 20070829
  Transmission Date: 20080115
  Serious: Yes (Death)
  Sender: FDA-Public Use
  Company Number: HQWYE929030AUG07

PATIENT
  Age: 45 Year
  Sex: Male

DRUGS (7)
  1. EFFEXOR XR [Suspect]
     Indication: DEPRESSION
     Dosage: OVERDOSE AMOUNT UNKNOWN
     Route: 048
     Dates: start: 20070630, end: 20070630
  2. ZOLOFT [Concomitant]
  3. PAXIL [Concomitant]
     Dosage: UNKNOWN
  4. FLEXERIL [Concomitant]
     Dosage: UNKNOWN
  5. BUSPAR [Concomitant]
     Dosage: UNKNOWN
  6. KLONOPIN [Concomitant]
  7. TEMAZEPAM [Concomitant]
     Dosage: UNKNOWN

REACTIONS (2)
  - ANTIDEPRESSANT DRUG LEVEL INCREASED [None]
  - OVERDOSE [None]
